FAERS Safety Report 4407988-3 (Version None)
Quarter: 2004Q3

REPORT INFORMATION
  Report Type: 
  Country: None (occurrence: None)
  Receive Date: 20040722
  Receipt Date: 20040706
  Transmission Date: 20050211
  Serious: Yes (Other)
  Sender: FDA-Public Use
  Company Number: NLWYE880606JUL04

PATIENT
  Age: 70 Year
  Sex: Male

DRUGS (1)
  1. EFFEXOR [Suspect]
     Indication: GENERALISED ANXIETY DISORDER
     Dosage: ORAL
     Route: 048
     Dates: end: 20030101

REACTIONS (2)
  - BILIARY NEOPLASM [None]
  - LIVER DISORDER [None]
